FAERS Safety Report 18031760 (Version 1)
Quarter: 2020Q3

REPORT INFORMATION
  Report Type: Spontaneous
  Country: US (occurrence: US)
  Receive Date: 20200716
  Receipt Date: 20200716
  Transmission Date: 20201103
  Serious: No
  Sender: FDA-Public Use
  Company Number: None

PATIENT
  Sex: Male

DRUGS (11)
  1. ELIQUIS [Concomitant]
     Active Substance: APIXABAN
  2. REPATHA [Suspect]
     Active Substance: EVOLOCUMAB
  3. VALSARTAN. [Concomitant]
     Active Substance: VALSARTAN
  4. DILTIAZEM. [Concomitant]
     Active Substance: DILTIAZEM
  5. CLOMIPHENE [Concomitant]
     Active Substance: CLOMIPHENE
  6. SOTALOL. [Concomitant]
     Active Substance: SOTALOL
  7. TADALAFIL. [Concomitant]
     Active Substance: TADALAFIL
  8. METFORMIN [Concomitant]
     Active Substance: METFORMIN HYDROCHLORIDE
  9. AMLODIPINE [Concomitant]
     Active Substance: AMLODIPINE BESYLATE
  10. OZEMPIC [Concomitant]
     Active Substance: SEMAGLUTIDE
  11. METOPROLOL. [Concomitant]
     Active Substance: METOPROLOL

REACTIONS (6)
  - Blood creatinine increased [None]
  - Breath odour [None]
  - Abdominal pain upper [None]
  - Mucous stools [None]
  - Faeces discoloured [None]
  - Chromaturia [None]
